FAERS Safety Report 9463824 (Version 1)
Quarter: 2013Q3

REPORT INFORMATION
  Report Type: Report from Study
  Country: FR (occurrence: FR)
  Receive Date: 20130819
  Receipt Date: 20130819
  Transmission Date: 20140515
  Serious: Yes (Hospitalization)
  Sender: FDA-Public Use
  Company Number: FR-JNJFOC-20130807641

PATIENT
  Age: 76 Year
  Sex: Female

DRUGS (24)
  1. DOXORUBICIN [Suspect]
     Indication: PLASMA CELL MYELOMA
     Dosage: TREATMENT LINE 2; CYCLE 3
     Route: 042
     Dates: start: 20130523, end: 20130612
  2. DOXORUBICIN [Suspect]
     Indication: PLASMA CELL MYELOMA
     Dosage: TREATMENT LINE 2; CYCLE 3
     Route: 042
     Dates: start: 20130228, end: 20130326
  3. DOXORUBICIN [Suspect]
     Indication: PLASMA CELL MYELOMA
     Dosage: TREATMENT LINE 2; CYCLE 2
     Route: 042
     Dates: start: 20130110, end: 20130206
  4. VINCRISTINE [Suspect]
     Indication: PLASMA CELL MYELOMA
     Dosage: TREATMENT LINE 3; CYCLE 2
     Route: 065
     Dates: start: 20130523, end: 20130612
  5. VINCRISTINE [Suspect]
     Indication: PLASMA CELL MYELOMA
     Dosage: TREATMENT LINE 3; CYCLE 1
     Route: 065
     Dates: start: 20130613, end: 20130703
  6. VINCRISTINE [Suspect]
     Indication: PLASMA CELL MYELOMA
     Dosage: TREATMENT LINE 2; CYCLE 2
     Route: 065
     Dates: start: 20130110, end: 20130206
  7. VINCRISTINE [Suspect]
     Indication: PLASMA CELL MYELOMA
     Dosage: TREATMENT LINE 3; CYCLE 1
     Route: 065
     Dates: start: 20130327, end: 20130522
  8. VINCRISTINE [Suspect]
     Indication: PLASMA CELL MYELOMA
     Dosage: TREATMENT LINE 2; CYCLE 2
     Route: 065
     Dates: start: 20130207, end: 20130227
  9. VINCRISTINE [Suspect]
     Indication: PLASMA CELL MYELOMA
     Dosage: TREATMENT LINE 2; CYCLE 3
     Route: 065
     Dates: start: 20130228, end: 20130326
  10. CARMUSTINE [Suspect]
     Indication: PLASMA CELL MYELOMA
     Dosage: TREATMENT LINE 3; CYCLE 2
     Route: 065
     Dates: start: 20130523, end: 20130612
  11. CARMUSTINE [Suspect]
     Indication: PLASMA CELL MYELOMA
     Dosage: TREATMENT LINE 2; CYCLE 2
     Route: 065
     Dates: start: 20130110, end: 20130206
  12. CARMUSTINE [Suspect]
     Indication: PLASMA CELL MYELOMA
     Dosage: TREATMENT LINE 2; CYCLE 3
     Route: 065
     Dates: start: 20130228, end: 20130326
  13. METHYLPREDNISOLONE [Suspect]
     Indication: PLASMA CELL MYELOMA
     Dosage: TREATMENT LINE 2; CYCLE 2
     Route: 065
     Dates: start: 20130110, end: 20130206
  14. METHYLPREDNISOLONE [Suspect]
     Indication: PLASMA CELL MYELOMA
     Dosage: TREATMENT LINE 2; CYCLE 2
     Route: 065
     Dates: start: 20130207, end: 20130227
  15. METHYLPREDNISOLONE [Suspect]
     Indication: PLASMA CELL MYELOMA
     Dosage: TREATMENT LINE 2; CYCLE 3
     Route: 065
     Dates: start: 20130228, end: 20130326
  16. METHYLPREDNISOLONE [Suspect]
     Indication: PLASMA CELL MYELOMA
     Dosage: TREATMENT LINE 3; CYCLE 1
     Route: 065
     Dates: start: 20130327, end: 20130522
  17. METHYLPREDNISOLONE [Suspect]
     Indication: PLASMA CELL MYELOMA
     Dosage: TREATMENT LINE 3; CYCLE 2
     Route: 065
     Dates: start: 20130523, end: 20130612
  18. METHYLPREDNISOLONE [Suspect]
     Indication: PLASMA CELL MYELOMA
     Dosage: TREATMENT LINE 3; CYCLE 3
     Route: 065
     Dates: start: 20130613, end: 20130703
  19. ENDOXAN [Suspect]
     Indication: PLASMA CELL MYELOMA
     Dosage: TREATMENT LINE 3; CYCLE 3
     Route: 065
     Dates: start: 20130613, end: 20130703
  20. ENDOXAN [Suspect]
     Indication: PLASMA CELL MYELOMA
     Dosage: TREATMENT LINE 3; CYCLE 1
     Route: 065
     Dates: start: 20130327, end: 20130522
  21. ENDOXAN [Suspect]
     Indication: PLASMA CELL MYELOMA
     Dosage: TREATMENT LINE 2; CYCLE 2
     Route: 065
     Dates: start: 20130207, end: 20130227
  22. ZELITREX [Concomitant]
     Route: 065
     Dates: start: 20121004
  23. PENTACARINAT [Concomitant]
     Route: 065
     Dates: start: 20121102
  24. NIVESTIM [Concomitant]
     Route: 065
     Dates: start: 20130118

REACTIONS (1)
  - Bone pain [Recovered/Resolved]
